FAERS Safety Report 25083543 (Version 1)
Quarter: 2025Q1

REPORT INFORMATION
  Report Type: Spontaneous
  Country: US (occurrence: None)
  Receive Date: 20250314
  Receipt Date: 20250314
  Transmission Date: 20250409
  Serious: Yes (Hospitalization)
  Sender: FDA-CTU
  Company Number: None

PATIENT
  Sex: Male

DRUGS (1)
  1. TRACLEER [Suspect]
     Active Substance: BOSENTAN
     Indication: Pulmonary hypertension
     Dosage: 32MG BID ORAL
     Route: 048
     Dates: start: 20241210

REACTIONS (2)
  - Lung opacity [None]
  - X-ray abnormal [None]

NARRATIVE: CASE EVENT DATE: 20250219
